FAERS Safety Report 8732402 (Version 2)
Quarter: 2015Q2

REPORT INFORMATION
  Report Type: Report from Study
  Country: US (occurrence: US)
  Receive Date: 20120820
  Receipt Date: 20150629
  Transmission Date: 20150821
  Serious: Yes (Life-Threatening, Hospitalization, Other)
  Sender: FDA-Public Use
  Company Number: US-ROCHE-1098736

PATIENT
  Sex: Male

DRUGS (15)
  1. ACTIVASE [Suspect]
     Active Substance: ALTEPLASE
     Route: 065
  2. COLACE [Concomitant]
     Active Substance: DOCUSATE SODIUM
     Route: 065
  3. POTASSIUM CHLORIDE. [Concomitant]
     Active Substance: POTASSIUM CHLORIDE
     Route: 065
  4. NITROGLYCERINE [Concomitant]
     Active Substance: NITROGLYCERIN
     Route: 065
  5. ACTIVASE [Suspect]
     Active Substance: ALTEPLASE
     Indication: MYOCARDIAL INFARCTION
     Dosage: 3 VIALS
     Route: 065
  6. ATROPINE [Concomitant]
     Active Substance: ATROPINE
     Route: 042
  7. MORPHINE SULFATE. [Concomitant]
     Active Substance: MORPHINE SULFATE
     Route: 065
  8. ACTIVASE [Suspect]
     Active Substance: ALTEPLASE
     Route: 065
  9. LOPRESSOR [Concomitant]
     Active Substance: METOPROLOL TARTRATE
     Route: 065
  10. RESTORIL (UNITED STATES) [Concomitant]
     Route: 065
  11. MORPHINE [Concomitant]
     Active Substance: MORPHINE
     Route: 065
  12. ACTIVASE [Suspect]
     Active Substance: ALTEPLASE
     Route: 065
  13. METOCLOPRAMIDE. [Concomitant]
     Active Substance: METOCLOPRAMIDE
     Route: 065
  14. ROCEPHIN [Concomitant]
     Active Substance: CEFTRIAXONE SODIUM
     Route: 065
  15. ASPIRIN. [Concomitant]
     Active Substance: ASPIRIN

REACTIONS (10)
  - Pain [Unknown]
  - Cardiogenic shock [Unknown]
  - Cardiac failure chronic [Unknown]
  - Drug ineffective [Unknown]
  - Pneumonia [Unknown]
  - Blood pressure increased [Unknown]
  - Chest pain [Unknown]
  - Crepitations [Unknown]
  - Pulmonary oedema [Unknown]
  - Ventricular arrhythmia [Unknown]
